FAERS Safety Report 9090820 (Version 1)
Quarter: 2013Q1

REPORT INFORMATION
  Report Type: Report from Study
  Country: US (occurrence: US)
  Receive Date: 20130131
  Receipt Date: 20130131
  Transmission Date: 20140127
  Serious: No
  Sender: FDA-Public Use
  Company Number: US-ABBOTT-12P-163-1011593-00

PATIENT
  Age: 57 Year
  Sex: Female

DRUGS (16)
  1. HUMIRA [Suspect]
     Indication: PSORIASIS
     Dates: start: 201110
  2. GABAPENTIN [Concomitant]
     Indication: PAIN IN EXTREMITY
     Dosage: DAILY
  3. HYDROCODONE [Concomitant]
     Indication: BACK PAIN
     Dosage: 5-325MG
  4. HYDROCODONE [Concomitant]
     Indication: PAIN IN EXTREMITY
  5. HYDROCODONE [Concomitant]
     Indication: PROCEDURAL PAIN
  6. METFORMIN [Concomitant]
     Indication: DIABETES MELLITUS
     Dosage: DAILY
  7. TEGRETOL [Concomitant]
     Indication: FACIAL PAIN
     Dosage: DAILY
  8. METOPROLOL [Concomitant]
     Indication: HYPERTENSION
     Dosage: DAILY
  9. LISINOPRIL [Concomitant]
     Indication: HYPERTENSION
     Dosage: DAILY
  10. HYDROCHLOROTHIAZIDE [Concomitant]
     Indication: PRODUCT USED FOR UNKNOWN INDICATION
     Dosage: DAILY
  11. LEVOTHYROXINE [Concomitant]
     Indication: HYPOTHYROIDISM
     Dosage: DAILY
  12. SIMVASTATIN [Concomitant]
     Indication: BLOOD CHOLESTEROL INCREASED
     Dosage: DAILY
  13. TRAZODONE [Concomitant]
     Indication: INSOMNIA
     Dosage: AT BEDTIME
  14. GLIPIZIDE [Concomitant]
     Indication: DIABETES MELLITUS
  15. LANTIS [Concomitant]
     Indication: DIABETES MELLITUS
     Dosage: EVERY NIGHT BY SLIDING SCALE
     Route: 050
  16. NOVOLOG [Concomitant]
     Indication: DIABETES MELLITUS
     Dosage: BEFORE MEALS

REACTIONS (1)
  - Drug ineffective [Not Recovered/Not Resolved]
